FAERS Safety Report 4551779-X (Version None)
Quarter: 2005Q1

REPORT INFORMATION
  Report Type: 
  Country: None (occurrence: None)
  Receive Date: 20050113
  Receipt Date: 20050104
  Transmission Date: 20050727
  Serious: Yes (Life-Threatening, Hospitalization)
  Sender: FDA-Public Use
  Company Number: GB-GLAXOSMITHKLINE-B0363334A

PATIENT
  Age: 82 Year
  Sex: Female

DRUGS (7)
  1. VENTOLIN [Suspect]
     Indication: CHRONIC OBSTRUCTIVE AIRWAYS DISEASE EXACERBATED
     Route: 065
     Dates: start: 20041208, end: 20041208
  2. PREDNISOLONE [Concomitant]
     Indication: CHRONIC OBSTRUCTIVE AIRWAYS DISEASE EXACERBATED
     Dosage: 30MG PER DAY
     Route: 048
     Dates: start: 20041205, end: 20041209
  3. CLARITHROMYCIN [Concomitant]
     Route: 048
     Dates: start: 20041208
  4. ADCAL D3 [Concomitant]
     Indication: OSTEOPOROSIS
     Route: 048
  5. BENDROFLUMETHIAZIDE [Concomitant]
     Dosage: 2.5MG PER DAY
     Route: 048
  6. CORACTEN [Concomitant]
     Dosage: 20MG PER DAY
     Route: 048
  7. CO-AMOXICLAV [Concomitant]
     Dosage: 1.2G THREE TIMES PER DAY
     Route: 042
     Dates: start: 20041209

REACTIONS (3)
  - DYSPNOEA [None]
  - THROAT TIGHTNESS [None]
  - TREMOR [None]
